FAERS Safety Report 17711141 (Version 1)
Quarter: 2020Q2

REPORT INFORMATION
  Report Type: Spontaneous
  Country: US (occurrence: US)
  Receive Date: 20200424
  Receipt Date: 20200424
  Transmission Date: 20200714
  Serious: Yes (Other)
  Sender: FDA-Public Use
  Company Number: None

PATIENT
  Age: 77 Year
  Sex: Male
  Weight: 63.54 kg

DRUGS (2)
  1. ERLEADA [Suspect]
     Active Substance: APALUTAMIDE
     Indication: PROSTATE CANCER METASTATIC
     Route: 048
     Dates: start: 20191101, end: 20191220
  2. ERLEADA [Concomitant]
     Active Substance: APALUTAMIDE
     Dates: start: 20191101, end: 20191220

REACTIONS (1)
  - Rash [None]

NARRATIVE: CASE EVENT DATE: 20191220
